FAERS Safety Report 18104045 (Version 2)
Quarter: 2020Q3

REPORT INFORMATION
  Report Type: Report from Study
  Country: US (occurrence: US)
  Receive Date: 20200803
  Receipt Date: 20200804
  Transmission Date: 20201103
  Serious: Yes (Hospitalization)
  Sender: FDA-Public Use
  Company Number: US-PFIZER INC-2020291718

PATIENT
  Age: 89 Year
  Sex: Female

DRUGS (31)
  1. RUXOLITINIB [Suspect]
     Active Substance: RUXOLITINIB
     Indication: ESSENTIAL THROMBOCYTHAEMIA
     Dosage: 15 MG, 2X/DAY
     Route: 048
     Dates: start: 20180503, end: 20190612
  2. CYANOCOBALAMIN. [Concomitant]
     Active Substance: CYANOCOBALAMIN
  3. NEXIUM I.V. [Concomitant]
     Active Substance: ESOMEPRAZOLE SODIUM
  4. LEVAQUIN [Concomitant]
     Active Substance: LEVOFLOXACIN
  5. RUXOLITINIB [Suspect]
     Active Substance: RUXOLITINIB
     Dosage: 15 MG, 2X/DAY
     Route: 048
     Dates: start: 20190613
  6. LISINOPRIL. [Concomitant]
     Active Substance: LISINOPRIL
  7. COREG [Concomitant]
     Active Substance: CARVEDILOL
  8. AUGMENTIN [Concomitant]
     Active Substance: AMOXICILLIN\CLAVULANATE POTASSIUM
  9. HYGROTON [Concomitant]
     Active Substance: CHLORTHALIDONE
  10. LEXAPRO [Concomitant]
     Active Substance: ESCITALOPRAM OXALATE
  11. DELTASONE [PREDNISOLONE] [Concomitant]
  12. TOVIAZ [Concomitant]
     Active Substance: FESOTERODINE FUMARATE
  13. PERCOCET [Suspect]
     Active Substance: ACETAMINOPHEN\OXYCODONE HYDROCHLORIDE
     Indication: PAIN
     Dosage: 10?325MG, EVERY 6 HOURS (Q6H), AS NEEDED
     Route: 048
  14. NORVASC [Concomitant]
     Active Substance: AMLODIPINE BESYLATE
  15. CENTRUM SILVER [ASCORBIC ACID;BETACAROTENE;BIOTIN;CALCIUM;CHROMIUM;COL [Concomitant]
  16. XANAX [Suspect]
     Active Substance: ALPRAZOLAM
     Indication: ANXIETY
     Dosage: 1 MG, 2X/DAY
     Route: 048
  17. XANAX [Suspect]
     Active Substance: ALPRAZOLAM
     Indication: SLEEP DISORDER
  18. VENTOLIN HFA [Concomitant]
     Active Substance: ALBUTEROL SULFATE
  19. FLECTOR [Concomitant]
     Active Substance: DICLOFENAC EPOLAMINE
  20. ASPIRIN [ACETYLSALICYLIC ACID] [Concomitant]
     Active Substance: ASPIRIN
  21. SYNTHROID [Concomitant]
     Active Substance: LEVOTHYROXINE SODIUM
  22. LASIX [Concomitant]
     Active Substance: FUROSEMIDE
  23. KLOR?CON [Concomitant]
     Active Substance: POTASSIUM CHLORIDE
  24. BREO ELLIPTA [Concomitant]
     Active Substance: FLUTICASONE FUROATE\VILANTEROL TRIFENATATE
  25. DITROPAN [Concomitant]
     Active Substance: OXYBUTYNIN CHLORIDE
  26. ZYLOPRIM [Concomitant]
     Active Substance: ALLOPURINOL
  27. VOLTAREN [Concomitant]
     Active Substance: DICLOFENAC SODIUM
  28. FERROUS SULFATE. [Concomitant]
     Active Substance: FERROUS SULFATE
  29. FISH OIL [Concomitant]
     Active Substance: FISH OIL
  30. POTASSIUM GLUCONATE [Concomitant]
     Active Substance: POTASSIUM GLUCONATE
  31. ZYRTEC [Concomitant]
     Active Substance: CETIRIZINE HYDROCHLORIDE

REACTIONS (4)
  - Mental status changes [Recovered/Resolved]
  - Anaemia [Recovered/Resolved]
  - Pelvic bone injury [Recovering/Resolving]
  - Hypertension [Recovered/Resolved]

NARRATIVE: CASE EVENT DATE: 20191013
